FAERS Safety Report 8249871-1 (Version None)
Quarter: 2012Q2

REPORT INFORMATION
  Report Type: 
  Country: None (occurrence: None)
  Receive Date: 20120402
  Receipt Date: 20120327
  Transmission Date: 20120825
  Serious: Yes (Life-Threatening, Hospitalization)
  Sender: FDA-Public Use
  Company Number: ES-ASTRAZENECA-2012SE19930

PATIENT
  Age: 50 Year
  Sex: Male

DRUGS (1)
  1. BRILIQUE [Suspect]
     Indication: ISCHAEMIC CARDIOMYOPATHY
     Route: 048
     Dates: start: 20120223, end: 20120305

REACTIONS (1)
  - THROMBOCYTOPENIC PURPURA [None]
